FAERS Safety Report 8114703-9 (Version None)
Quarter: 2012Q1

REPORT INFORMATION
  Report Type: 
  Country: None (occurrence: None)
  Receive Date: 20120206
  Receipt Date: 20120131
  Transmission Date: 20120608
  Serious: Yes (Other)
  Sender: FDA-Public Use
  Company Number: BR-PFIZER INC-2012027414

PATIENT
  Sex: Male

DRUGS (2)
  1. VIBRAMYCIN [Suspect]
     Indication: GONORRHOEA
     Dosage: 100 MG, 2X/DAY FOR SEVEN DAYS
     Route: 048
     Dates: start: 20111101
  2. ZITHROMAX [Suspect]
     Indication: GONORRHOEA
     Dosage: 100 MG, SINGLE
     Route: 048
     Dates: start: 20111101

REACTIONS (2)
  - GONORRHOEA [None]
  - DRUG INEFFECTIVE [None]
